FAERS Safety Report 12220410 (Version 1)
Quarter: 2016Q1

REPORT INFORMATION
  Report Type: Spontaneous
  Country: UA (occurrence: US)
  Receive Date: 20160330
  Receipt Date: 20160330
  Transmission Date: 20160526
  Serious: No
  Sender: FDA-Public Use
  Company Number: UA-BAYER-2016-059049

PATIENT
  Age: 55 Year
  Sex: Female

DRUGS (1)
  1. BETASERON [Suspect]
     Active Substance: INTERFERON BETA-1B
     Indication: MULTIPLE SCLEROSIS
     Dosage: 0.3 MG, QOD
     Route: 058
     Dates: start: 2004

REACTIONS (5)
  - Influenza like illness [None]
  - Pyrexia [None]
  - Chills [None]
  - Fatigue [None]
  - Pain [None]

NARRATIVE: CASE EVENT DATE: 20160301
